FAERS Safety Report 6982831-7 (Version None)
Quarter: 2010Q3

REPORT INFORMATION
  Report Type: 
  Country: None (occurrence: None)
  Receive Date: 20100914
  Receipt Date: 20100616
  Transmission Date: 20110219
  Serious: No
  Sender: FDA-Public Use
  Company Number: US-PFIZER INC-2010042633

PATIENT
  Sex: Male
  Weight: 106.58 kg

DRUGS (11)
  1. LYRICA [Suspect]
     Indication: NEUROPATHY PERIPHERAL
     Dosage: 100 MG, 2X/DAY
     Route: 048
     Dates: start: 20081112
  2. LYRICA [Suspect]
     Indication: PAIN
     Dosage: 100 MG, 3X/DAY
     Route: 048
  3. LYRICA [Suspect]
     Indication: NEURALGIA
     Dosage: 100 MG, 2X/DAY
     Route: 048
  4. METHADONE [Concomitant]
     Indication: PAIN
     Dosage: 5 MG, EVERY SIX HOURS
  5. RANITIDINE [Concomitant]
     Indication: GASTROOESOPHAGEAL REFLUX DISEASE
     Dosage: 300 MG, 2X/DAY
     Route: 048
  6. ATENOLOL [Concomitant]
     Indication: BLOOD PRESSURE ABNORMAL
     Dosage: 50 MG, 1X/DAY
     Route: 048
  7. FLONASE [Concomitant]
     Indication: HYPERSENSITIVITY
     Dosage: UNK,  TWO SPRAYS IN EACH NOSTRILS DAILY
     Route: 045
  8. TESTOSTERONE [Concomitant]
     Indication: ANDROGEN DEFICIENCY
     Dosage: 2.5 MG, UNK
     Route: 062
  9. LIDOCAINE [Concomitant]
     Dosage: UNK
  10. HYDROCORTISONE [Concomitant]
     Dosage: UNK
  11. PRAVASTATIN [Concomitant]
     Indication: BLOOD CHOLESTEROL ABNORMAL
     Dosage: 20 MG, 1X/DAY
     Route: 048

REACTIONS (5)
  - DRUG DOSE OMISSION [None]
  - INCORRECT DOSE ADMINISTERED [None]
  - NASOPHARYNGITIS [None]
  - PYREXIA [None]
  - THROAT IRRITATION [None]
